FAERS Safety Report 17917273 (Version 1)
Quarter: 2020Q2

REPORT INFORMATION
  Report Type: Spontaneous
  Country: AU (occurrence: AU)
  Receive Date: 20200619
  Receipt Date: 20200619
  Transmission Date: 20200714
  Serious: Yes (Other)
  Sender: FDA-Public Use
  Company Number: AU-ASTRAZENECA-2020SE76882

PATIENT
  Age: 65 Year
  Sex: Male

DRUGS (2)
  1. OSIMERTINIB. [Suspect]
     Active Substance: OSIMERTINIB
     Indication: NON-SMALL CELL LUNG CANCER
     Route: 048
  2. OSIMERTINIB. [Suspect]
     Active Substance: OSIMERTINIB
     Indication: EGFR GENE MUTATION
     Route: 048

REACTIONS (8)
  - Hemiparesis [Unknown]
  - Incontinence [Unknown]
  - Metastases to meninges [Unknown]
  - Facial paralysis [Unknown]
  - Sensory loss [Unknown]
  - Toxicity to various agents [Unknown]
  - Neurological symptom [Unknown]
  - Dysarthria [Unknown]
